FAERS Safety Report 11602114 (Version 1)
Quarter: 2015Q4

REPORT INFORMATION
  Report Type: Spontaneous
  Country: US (occurrence: US)
  Receive Date: 20151006
  Receipt Date: 20151006
  Transmission Date: 20160304
  Serious: No
  Sender: FDA-Public Use
  Company Number: US-AMGEN-USASP2015036988

PATIENT
  Sex: Female

DRUGS (1)
  1. PROLIA [Suspect]
     Active Substance: DENOSUMAB
     Indication: PRODUCT USED FOR UNKNOWN INDICATION
     Dosage: UNK UNK, UNK
     Route: 065
     Dates: start: 201411

REACTIONS (5)
  - Myalgia [Unknown]
  - Arthralgia [Recovered/Resolved]
  - Muscular weakness [Unknown]
  - Pain in extremity [Recovered/Resolved]
  - Pain [Not Recovered/Not Resolved]
